FAERS Safety Report 6719732-5 (Version None)
Quarter: 2010Q2

REPORT INFORMATION
  Report Type: 
  Country: None (occurrence: None)
  Receive Date: 20100511
  Receipt Date: 20100430
  Transmission Date: 20101027
  Serious: Yes (Hospitalization)
  Sender: FDA-Public Use
  Company Number: A0757968A

PATIENT
  Age: 54 Year
  Sex: Female
  Weight: 143.6 kg

DRUGS (10)
  1. AVANDIA [Suspect]
     Dosage: 8MG PER DAY
     Route: 048
     Dates: start: 20000511, end: 20070826
  2. UNSPECIFIED MEDICATION [Concomitant]
  3. IBUPROFEN [Concomitant]
  4. TYLENOL W/ CODEINE NO. 3 [Concomitant]
  5. LIPITOR [Concomitant]
  6. HYDROCHLOROTHIAZIDE [Concomitant]
  7. METFORMIN HYDROCHLORIDE [Concomitant]
  8. GLUCOPHAGE [Concomitant]
  9. ACTOS [Concomitant]
  10. PREDNISONE [Concomitant]

REACTIONS (3)
  - ATRIOVENTRICULAR BLOCK COMPLETE [None]
  - CARDIAC FAILURE CONGESTIVE [None]
  - MYOCARDIAL INFARCTION [None]
